FAERS Safety Report 17690080 (Version 1)
Quarter: 2020Q2

REPORT INFORMATION
  Report Type: Spontaneous
  Country: CA (occurrence: CA)
  Receive Date: 20200421
  Receipt Date: 20200421
  Transmission Date: 20200714
  Serious: Yes (Other)
  Sender: FDA-Public Use
  Company Number: CA-TEVA-2020-CA-1225490

PATIENT
  Age: 52 Year
  Sex: Female
  Weight: 29 kg

DRUGS (6)
  1. GRANISETRON HYDROCHLORIDE. [Concomitant]
     Active Substance: GRANISETRON HYDROCHLORIDE
  2. AMINOMETHYLBENZOIC ACID/CALCIUM CHLORIDE, HEXAHYDRATE/PLASMAPROTEIN FR [Concomitant]
  3. ZINCUM [ZINC] [Concomitant]
     Dosage: GLOBULES
  4. PRAMIPEXOLE DIHYDROCHLORIDE. [Suspect]
     Active Substance: PRAMIPEXOLE DIHYDROCHLORIDE
     Indication: RESTLESS LEGS SYNDROME
     Dosage: .125 MILLIGRAM DAILY;
     Route: 065
  5. CYMBALTA [Concomitant]
     Active Substance: DULOXETINE HYDROCHLORIDE
  6. VARENICLINE TARTRATE [Suspect]
     Active Substance: VARENICLINE TARTRATE
     Indication: SMOKING CESSATION THERAPY
     Dosage: 2 DOSAGE FORMS DAILY;
     Route: 065

REACTIONS (4)
  - Wrist fracture [Unknown]
  - Arthralgia [Unknown]
  - Alcohol use [Unknown]
  - Amnesia [Unknown]
